FAERS Safety Report 4761362-9 (Version None)
Quarter: 2005Q3

REPORT INFORMATION
  Report Type: 
  Country: None (occurrence: None)
  Receive Date: 20050901
  Receipt Date: 20050825
  Transmission Date: 20060218
  Serious: Yes (Hospitalization, Other)
  Sender: FDA-Public Use
  Company Number: HQWYE766008AUG05

PATIENT
  Age: 76 Year
  Sex: Female

DRUGS (4)
  1. BLINDED THERAPY FOR TEMSIROLIMUS [Concomitant]
     Indication: BREAST CANCER
     Dosage: 30 MG FOR 5 DAYS EVERY TWO WEEKS ORAL
     Route: 048
     Dates: start: 20050602
  2. LETROZOLE [Suspect]
     Indication: BREAST CANCER
     Dosage: 2.5 MG 1X PER 1 DAY ORAL
     Route: 048
     Dates: start: 20050602
  3. LISINOPRIL AND HYDROCHLOROTHIAZIDE [Concomitant]
  4. TEMSIROLIMUS [Concomitant]

REACTIONS (5)
  - DRUG TOXICITY [None]
  - FATIGUE [None]
  - HAEMOGLOBIN ABNORMAL [None]
  - PNEUMONIA [None]
  - WHITE BLOOD CELL COUNT DECREASED [None]
